FAERS Safety Report 6846087-8 (Version None)
Quarter: 2010Q3

REPORT INFORMATION
  Report Type: 
  Country: None (occurrence: None)
  Receive Date: 20100715
  Receipt Date: 20071112
  Transmission Date: 20110219
  Serious: No
  Sender: FDA-Public Use
  Company Number: US-PFIZER INC-2007073471

PATIENT
  Sex: Female
  Weight: 70.5 kg

DRUGS (6)
  1. CHANTIX [Suspect]
     Indication: SMOKING CESSATION THERAPY
     Route: 048
     Dates: start: 20070308, end: 20070601
  2. ADVAIR DISKUS 100/50 [Concomitant]
  3. MIRTAZAPINE [Concomitant]
  4. CLONAZEPAM [Concomitant]
  5. DOXEPIN HCL [Concomitant]
  6. CLONIDINE [Concomitant]

REACTIONS (6)
  - ABNORMAL DREAMS [None]
  - AGGRESSION [None]
  - EAR INFECTION [None]
  - PHARYNGITIS [None]
  - SLEEP DISORDER [None]
  - STRESS [None]
